FAERS Safety Report 8106205-0 (Version None)
Quarter: 2012Q1

REPORT INFORMATION
  Report Type: 
  Country: None (occurrence: None)
  Receive Date: 20120130
  Receipt Date: 20120124
  Transmission Date: 20120608
  Serious: Yes (Other)
  Sender: FDA-Public Use
  Company Number: IMP_05476_2011

PATIENT
  Age: 26 Year
  Sex: Female
  Weight: 60.782 kg

DRUGS (2)
  1. LITHIUM CARBONATE [Concomitant]
  2. BUPROPION HCL [Suspect]
     Indication: PRODUCT USED FOR UNKNOWN INDICATION
     Dosage: 300 MG QD ORAL
     Route: 048
     Dates: start: 20111103, end: 20111116

REACTIONS (10)
  - SELF-INJURIOUS IDEATION [None]
  - IRRITABILITY [None]
  - FEELING ABNORMAL [None]
  - MOOD ALTERED [None]
  - DEPRESSED MOOD [None]
  - MIGRAINE [None]
  - VOMITING [None]
  - INCREASED APPETITE [None]
  - CRYING [None]
  - ANGER [None]
